FAERS Safety Report 4659752-8 (Version None)
Quarter: 2005Q2

REPORT INFORMATION
  Report Type: 
  Country: None (occurrence: None)
  Receive Date: 20050510
  Receipt Date: 20050428
  Transmission Date: 20051028
  Serious: Yes (Hospitalization)
  Sender: FDA-Public Use
  Company Number: 04P-007-0268775-00

PATIENT
  Age: 51 Year
  Sex: Male

DRUGS (7)
  1. NORVIR [Suspect]
     Indication: HIV INFECTION
     Dosage: 100 MG, 2 IN 1 D, PER ORAL
     Route: 048
     Dates: start: 20031006, end: 20040707
  2. LOPERAMIDE HCL [Concomitant]
  3. TIPRANAVIR [Concomitant]
  4. ZIDOVUDINE [Concomitant]
  5. TENOFOVIR [Concomitant]
  6. LAMIVUDINE [Concomitant]
  7. OMEPRAZOLE [Concomitant]

REACTIONS (4)
  - DIARRHOEA [None]
  - GASTROINTESTINAL DISORDER [None]
  - MEGACOLON [None]
  - RENAL CYST [None]
